FAERS Safety Report 5674331-1 (Version None)
Quarter: 2008Q2

REPORT INFORMATION
  Report Type: 
  Country: None (occurrence: None)
  Receive Date: 20080229
  Receipt Date: 20071012
  Transmission Date: 20081010
  Serious: Yes (Other)
  Sender: FDA-Public Use
  Company Number: 249404

PATIENT
  Age: 14 Year
  Sex: Female
  Weight: 50.4 kg

DRUGS (1)
  1. NUTROPIN AQ [Suspect]
     Indication: GROWTH HORMONE DEFICIENCY
     Dosage: 3.6 MG, QHS, SUBCUTANEOUS
     Route: 058
     Dates: end: 20070829

REACTIONS (1)
  - PAPILLOEDEMA [None]
